FAERS Safety Report 6663517-5 (Version None)
Quarter: 2010Q1

REPORT INFORMATION
  Report Type: 
  Country: None (occurrence: None)
  Receive Date: 20100331
  Receipt Date: 20100331
  Transmission Date: 20100710
  Serious: Yes (Hospitalization, Other)
  Sender: FDA-Public Use
  Company Number: None

PATIENT
  Age: 67 Year
  Sex: Male
  Weight: 79.4 kg

DRUGS (15)
  1. ENOXAPARIN SODIUM [Suspect]
     Indication: DEEP VEIN THROMBOSIS
     Dosage: 80MG TWICE DAILY SQ
     Route: 058
     Dates: start: 20100112, end: 20100119
  2. WARFARIN SODIUM [Suspect]
     Indication: CEREBROVASCULAR ACCIDENT
     Dosage: 2MG DAILY PO, ONLY USED FOR 2 DAYS PTA
     Route: 048
  3. WARFARIN SODIUM [Suspect]
     Indication: DEEP VEIN THROMBOSIS
     Dosage: 2MG DAILY PO, ONLY USED FOR 2 DAYS PTA
     Route: 048
  4. WARFARIN SODIUM [Suspect]
     Indication: PERIPHERAL VASCULAR DISORDER
     Dosage: 2MG DAILY PO, ONLY USED FOR 2 DAYS PTA
     Route: 048
  5. ASPIRIN [Concomitant]
  6. PREGABLIN [Concomitant]
  7. LISINOPRIL [Concomitant]
  8. ACETAMINOPHEN AND HYDROCODONE BITARTRATE [Concomitant]
  9. ATENOLOL [Concomitant]
  10. CIPROFLOXACIN [Concomitant]
  11. CITALOPRAM HYDROBROMIDE [Concomitant]
  12. DOCUSATE SODIUM [Concomitant]
  13. ERGOCALCIFEROL [Concomitant]
  14. ESOMEPRAZOLE [Concomitant]
  15. MIRALAX [Concomitant]

REACTIONS (3)
  - ARTHRALGIA [None]
  - DEEP VEIN THROMBOSIS [None]
  - HAEMATOMA [None]
